FAERS Safety Report 9892311 (Version 1)
Quarter: 2014Q1

REPORT INFORMATION
  Report Type: Spontaneous
  Country: US (occurrence: US)
  Receive Date: 20140212
  Receipt Date: 20140212
  Transmission Date: 20141002
  Serious: No
  Sender: FDA-Public Use
  Company Number: US-MALLINCKRODT-T201401139

PATIENT
  Age: 58 Year
  Sex: Male
  Weight: 69.84 kg

DRUGS (3)
  1. FENTANYL TRANSDERMAL SYSTEM [Suspect]
     Indication: PAIN
     Dosage: 25 UG/HR, Q 48-72 HOURS
     Route: 062
     Dates: start: 20140124
  2. IBUPROFEN [Concomitant]
     Indication: NECK PAIN
     Dosage: 2 TABS, TID
     Route: 048
  3. FENTANYL [Concomitant]
     Indication: PAIN
     Dosage: 25 MCG/HR Q 72 HRS
     Route: 065

REACTIONS (4)
  - Drug withdrawal syndrome [Not Recovered/Not Resolved]
  - Muscle spasms [Not Recovered/Not Resolved]
  - Incorrect drug administration duration [Not Recovered/Not Resolved]
  - Drug effect decreased [Not Recovered/Not Resolved]
